FAERS Safety Report 11018803 (Version 2)
Quarter: 2015Q2

REPORT INFORMATION
  Report Type: Spontaneous
  Country: US (occurrence: US)
  Receive Date: 20150412
  Receipt Date: 20150524
  Transmission Date: 20150821
  Serious: Yes (Other)
  Sender: FDA-Public Use
  Company Number: US-JNJFOC-20140702006

PATIENT
  Sex: Female
  Weight: 87 kg

DRUGS (3)
  1. IFOSFAMIDE. [Suspect]
     Active Substance: IFOSFAMIDE
     Indication: LEIOMYOSARCOMA METASTATIC
     Route: 065
     Dates: start: 201110, end: 201205
  2. DOXORUBICIN [Suspect]
     Active Substance: DOXORUBICIN
     Indication: LEIOMYOSARCOMA METASTATIC
     Route: 042
  3. PALIFOSFAMIDE [Suspect]
     Active Substance: PALIFOSFAMIDE
     Indication: LEIOMYOSARCOMA METASTATIC
     Route: 065

REACTIONS (1)
  - Disease progression [Unknown]
